FAERS Safety Report 24366658 (Version 1)
Quarter: 2024Q3

REPORT INFORMATION
  Report Type: Other
  Country: AU (occurrence: AU)
  Receive Date: 20240926
  Receipt Date: 20240926
  Transmission Date: 20241017
  Serious: Yes (Death, Hospitalization)
  Sender: BIONPHARMA
  Company Number: AU-Bion-013901

PATIENT
  Age: 5 Week
  Sex: Male

DRUGS (2)
  1. DEXAMETHASONE [Suspect]
     Active Substance: DEXAMETHASONE
     Indication: Haemophagocytic lymphohistiocytosis
     Dosage: 10 MG/M2
  2. IMMUNOGLOBULIN [Concomitant]
     Indication: Haemophagocytic lymphohistiocytosis
     Dosage: 2 G/KG

REACTIONS (1)
  - Drug ineffective for unapproved indication [Fatal]
